FAERS Safety Report 17330116 (Version 1)
Quarter: 2020Q1

REPORT INFORMATION
  Report Type: Spontaneous
  Country: US (occurrence: US)
  Receive Date: 20200127
  Receipt Date: 20200127
  Transmission Date: 20200409
  Serious: No
  Sender: FDA-Public Use
  Company Number: None

PATIENT
  Age: 48 Year
  Sex: Female
  Weight: 67.5 kg

DRUGS (1)
  1. LAMOTRIGINE 100 MG TABLETS [Suspect]
     Active Substance: LAMOTRIGINE
     Indication: EPILEPSY
     Dosage: ?          QUANTITY:3 TABLET(S);??
     Route: 048
     Dates: start: 20191005, end: 20191007

REACTIONS (3)
  - Feeling abnormal [None]
  - Recalled product administered [None]
  - Product complaint [None]

NARRATIVE: CASE EVENT DATE: 20191005
